FAERS Safety Report 10570057 (Version 1)
Quarter: 2014Q4

REPORT INFORMATION
  Report Type: Spontaneous
  Country: US (occurrence: None)
  Receive Date: 20141105
  Receipt Date: 20141105
  Transmission Date: 20150529
  Serious: Yes (Other)
  Sender: FDA-Public Use
  Company Number: SP08481

PATIENT
  Age: 57 Year
  Sex: Male

DRUGS (4)
  1. XIFAXAN [Suspect]
     Active Substance: RIFAXIMIN
     Indication: HEPATIC ENCEPHALOPATHY
     Dosage: 1100 MG (550 MG, 2 IN 1 D), ORAL
     Route: 048
     Dates: start: 2013
  2. CARBIDOPA/LEVODOPA [Concomitant]
     Active Substance: CARBIDOPA\LEVODOPA
  3. CYCLOSPORINE. [Concomitant]
     Active Substance: CYCLOSPORINE
  4. PROGRAF [Concomitant]
     Active Substance: TACROLIMUS\TACROLIMUS ANHYDROUS

REACTIONS (6)
  - Ascites [None]
  - Staphylococcal bacteraemia [None]
  - Catatonia [None]
  - Hepatic cancer [None]
  - Confusional state [None]
  - Eructation [None]

NARRATIVE: CASE EVENT DATE: 2013
